FAERS Safety Report 19495571 (Version 1)
Quarter: 2021Q3

REPORT INFORMATION
  Report Type: Spontaneous
  Country: BR (occurrence: BR)
  Receive Date: 20210706
  Receipt Date: 20210706
  Transmission Date: 20211014
  Serious: Yes (Life-Threatening, Hospitalization, Other)
  Sender: FDA-Public Use
  Company Number: BR-AMGEN-BRASP2021102863

PATIENT
  Age: 50 Year
  Sex: Female
  Weight: 65 kg

DRUGS (2)
  1. BLINCYTO [Suspect]
     Active Substance: BLINATUMOMAB
     Indication: B PRECURSOR TYPE ACUTE LEUKAEMIA
     Dosage: 9 MICROGRAM, QD
     Route: 065
     Dates: start: 20210622, end: 202106
  2. BLINCYTO [Suspect]
     Active Substance: BLINATUMOMAB
     Dosage: 28 MICROGRAM, QD
     Route: 065
     Dates: start: 20210630, end: 20210701

REACTIONS (3)
  - Blast cell count increased [Unknown]
  - Capillary leak syndrome [Unknown]
  - Drug ineffective [Unknown]

NARRATIVE: CASE EVENT DATE: 202106
